APPROVED DRUG PRODUCT: PROCAN SR
Active Ingredient: PROCAINAMIDE HYDROCHLORIDE
Strength: 250MG
Dosage Form/Route: TABLET, EXTENDED RELEASE;ORAL
Application: A086468 | Product #001
Applicant: PARKE DAVIS DIV WARNER LAMBERT CO
Approved: Approved Prior to Jan 1, 1982 | RLD: Yes | RS: No | Type: DISCN